FAERS Safety Report 17620620 (Version 4)
Quarter: 2020Q2

REPORT INFORMATION
  Report Type: Report from Study
  Country: US (occurrence: US)
  Receive Date: 20200403
  Receipt Date: 20200601
  Transmission Date: 20200713
  Serious: Yes (Other)
  Sender: FDA-Public Use
  Company Number: US-ROCHE-2573751

PATIENT
  Sex: Male

DRUGS (15)
  1. SOTALOL. [Concomitant]
     Active Substance: SOTALOL
     Route: 065
  2. LISINOPRIL. [Concomitant]
     Active Substance: LISINOPRIL
     Route: 065
  3. GABAPENTIN. [Concomitant]
     Active Substance: GABAPENTIN
     Route: 048
  4. LOVASTATIN. [Concomitant]
     Active Substance: LOVASTATIN
     Route: 048
  5. WARFARIN [Concomitant]
     Active Substance: WARFARIN
     Route: 065
  6. TRAMADOL. [Concomitant]
     Active Substance: TRAMADOL
     Dosage: 1 TABLET ORAL EVERY 6 HOURS AS NEEDED
     Route: 065
  7. ESBRIET [Suspect]
     Active Substance: PIRFENIDONE
     Indication: IDIOPATHIC PULMONARY FIBROSIS
     Route: 048
  8. METFORMIN [Concomitant]
     Active Substance: METFORMIN HYDROCHLORIDE
     Route: 065
  9. OXYGEN. [Concomitant]
     Active Substance: OXYGEN
     Dosage: 4 LPM
     Route: 055
  10. ALBUTEROL [SALBUTAMOL] [Concomitant]
     Active Substance: ALBUTEROL
     Route: 065
  11. ALBUTEROL SULFATE HFA [Concomitant]
     Active Substance: ALBUTEROL SULFATE
     Dosage: 1 PUFF INHALATION EVERY 4-6 HOURS AS NEEDED
     Route: 065
  12. LANTUS [Concomitant]
     Active Substance: INSULIN GLARGINE
     Dosage: 1000 UNIT/ML
     Route: 058
  13. VASCEPA [Concomitant]
     Active Substance: ICOSAPENT ETHYL
     Dosage: TAKE 2 CAPSULE BY ORAL ROUTE 2 TIMES EVERY DAY WITH FOOD
     Route: 048
  14. ESBRIET [Suspect]
     Active Substance: PIRFENIDONE
     Indication: IDIOPATHIC PULMONARY FIBROSIS
     Dosage: 1 TABLET BY MOUTH 3 TIMES A DAY
     Route: 048
  15. VITAMIN D3 [Concomitant]
     Active Substance: CHOLECALCIFEROL
     Dosage: 5000 UNIT
     Route: 048

REACTIONS (1)
  - Malignant melanoma [Unknown]
